FAERS Safety Report 7356098-4 (Version None)
Quarter: 2011Q1

REPORT INFORMATION
  Report Type: 
  Country: None (occurrence: None)
  Receive Date: 20110316
  Receipt Date: 20100917
  Transmission Date: 20110831
  Serious: Yes (Hospitalization, Other)
  Sender: FDA-Public Use
  Company Number: US-BAYER-201021857NA

PATIENT
  Sex: Female
  Weight: 60.317 kg

DRUGS (5)
  1. GENTAMICIN [Concomitant]
     Dosage: UNK
     Dates: start: 20070619
  2. AMPICILLIN [Concomitant]
     Dosage: UNK
     Dates: start: 20070619
  3. YASMIN [Suspect]
     Indication: MENORRHAGIA
     Dosage: UNK UNK, QD
     Route: 048
     Dates: start: 20070223, end: 20070523
  4. CLINDAMYCIN [Concomitant]
     Dosage: UNK
     Dates: start: 20070619
  5. METADATE CD [Concomitant]
     Indication: ATTENTION DEFICIT/HYPERACTIVITY DISORDER
     Dosage: UNK
     Dates: start: 19970101, end: 20070101

REACTIONS (10)
  - THROMBOPHLEBITIS SUPERFICIAL [None]
  - CHEST PAIN [None]
  - PAIN [None]
  - PAIN IN EXTREMITY [None]
  - DEEP VEIN THROMBOSIS [None]
  - VENA CAVA THROMBOSIS [None]
  - PELVIC VENOUS THROMBOSIS [None]
  - OEDEMA PERIPHERAL [None]
  - PULMONARY EMBOLISM [None]
  - PULMONARY INFARCTION [None]
